FAERS Safety Report 26129511 (Version 2)
Quarter: 2025Q4

REPORT INFORMATION
  Report Type: Spontaneous
  Country: US (occurrence: US)
  Receive Date: 20251208
  Receipt Date: 20251231
  Transmission Date: 20260118
  Serious: No
  Sender: ROCHE
  Company Number: US-ROCHE-10000445456

PATIENT
  Sex: Male

DRUGS (1)
  1. COTELLIC [Suspect]
     Active Substance: COBIMETINIB FUMARATE
     Indication: Metabolic disorder
     Route: 048
     Dates: start: 202404

REACTIONS (3)
  - Visual impairment [Recovering/Resolving]
  - Eye haemorrhage [Recovering/Resolving]
  - Vascular rupture [Recovering/Resolving]
